FAERS Safety Report 5631336-4 (Version None)
Quarter: 2008Q1

REPORT INFORMATION
  Report Type: 
  Country: None (occurrence: None)
  Receive Date: 20080219
  Receipt Date: 20080122
  Transmission Date: 20080703
  Serious: Yes (Hospitalization)
  Sender: FDA-Public Use
  Company Number: JP-GILEAD-2008-0015060

PATIENT
  Sex: Male

DRUGS (8)
  1. TRUVADA [Suspect]
     Indication: HIV INFECTION
     Route: 048
     Dates: start: 20071126
  2. EFAVIRENZ [Suspect]
     Indication: HIV INFECTION
     Route: 048
     Dates: start: 20071126
  3. ISONIAZID [Concomitant]
  4. RIFAMPICIN [Concomitant]
     Dates: start: 20070901
  5. ESANBUTOL [Concomitant]
  6. PYRIDOXAL [Concomitant]
  7. GASTER [Concomitant]
  8. PREDNISOLONE [Concomitant]

REACTIONS (2)
  - BLOOD ALKALINE PHOSPHATASE INCREASED [None]
  - GAMMA-GLUTAMYLTRANSFERASE INCREASED [None]
